FAERS Safety Report 6194091-8 (Version None)
Quarter: 2009Q2

REPORT INFORMATION
  Report Type: 
  Country: None (occurrence: None)
  Receive Date: 20090514
  Receipt Date: 20090505
  Transmission Date: 20091009
  Serious: Yes (Other)
  Sender: FDA-Public Use
  Company Number: GXKR2009DE05514

PATIENT
  Age: 23 Year
  Sex: Male

DRUGS (3)
  1. TRAMADOL HCL [Suspect]
     Dosage: 200 MG, DAILY, ORAL
     Route: 048
  2. CITALOPRAM HYDROBROMIDE [Concomitant]
  3. LORAZEPAM [Concomitant]

REACTIONS (4)
  - ALTERED STATE OF CONSCIOUSNESS [None]
  - AMNESIA [None]
  - PERSONALITY DISORDER [None]
  - PSYCHOTIC DISORDER [None]
